FAERS Safety Report 9900679 (Version 7)
Quarter: 2015Q1

REPORT INFORMATION
  Report Type: Report from Study
  Country: CA (occurrence: CA)
  Receive Date: 20140217
  Receipt Date: 20150120
  Transmission Date: 20150721
  Serious: Yes (Other)
  Sender: FDA-Public Use
  Company Number: CA-ROCHE-1301808

PATIENT
  Sex: Female
  Weight: 44 kg

DRUGS (7)
  1. PREDNISONE. [Concomitant]
     Active Substance: PREDNISONE
  2. DILAUDID [Concomitant]
     Active Substance: HYDROMORPHONE HYDROCHLORIDE
  3. ACTEMRA [Suspect]
     Active Substance: TOCILIZUMAB
     Indication: JUVENILE IDIOPATHIC ARTHRITIS
     Route: 042
     Dates: start: 20130509
  4. FENTANYL. [Concomitant]
     Active Substance: FENTANYL
  5. ARAVA [Concomitant]
     Active Substance: LEFLUNOMIDE
  6. ACTEMRA [Suspect]
     Active Substance: TOCILIZUMAB
     Route: 042
     Dates: start: 20140625, end: 20141127
  7. ETANERCEPT [Concomitant]
     Active Substance: ETANERCEPT

REACTIONS (8)
  - Arthritis infective [Not Recovered/Not Resolved]
  - Abortion missed [Unknown]
  - Maternal exposure during pregnancy [Unknown]
  - Vaginal infection [Not Recovered/Not Resolved]
  - Complication of pregnancy [Recovered/Resolved]
  - Ear infection [Unknown]
  - Nipple infection [Not Recovered/Not Resolved]
  - Influenza [Unknown]

NARRATIVE: CASE EVENT DATE: 2014
